FAERS Safety Report 21334517 (Version 3)
Quarter: 2022Q4

REPORT INFORMATION
  Report Type: Spontaneous
  Country: PT (occurrence: PT)
  Receive Date: 20220914
  Receipt Date: 20221202
  Transmission Date: 20230113
  Serious: Yes (Disabling)
  Sender: FDA-Public Use
  Company Number: None

PATIENT
  Sex: Female
  Weight: 57 kg

DRUGS (2)
  1. PYLERA [Suspect]
     Active Substance: BISMUTH SUBCITRATE POTASSIUM\METRONIDAZOLE\TETRACYCLINE HYDROCHLORIDE
     Indication: Helicobacter infection
     Dosage: 12 DF, QD
     Route: 048
     Dates: start: 20220818, end: 20220824
  2. OMEPRAZOLE [Concomitant]
     Active Substance: OMEPRAZOLE
     Dates: start: 20220818

REACTIONS (13)
  - Patient isolation [Recovered/Resolved]
  - Anhedonia [Unknown]
  - Decreased appetite [Unknown]
  - Feeling abnormal [Unknown]
  - Muscular weakness [Recovered/Resolved]
  - Anxiety [Unknown]
  - Asthenia [Unknown]
  - Dizziness [Unknown]
  - Depression [Unknown]
  - Depressed mood [Unknown]
  - Vomiting [Unknown]
  - Fatigue [Unknown]
  - Confusional state [Unknown]
